FAERS Safety Report 13840958 (Version 1)
Quarter: 2017Q3

REPORT INFORMATION
  Report Type: Spontaneous
  Country: DE (occurrence: DE)
  Receive Date: 20170807
  Receipt Date: 20170807
  Transmission Date: 20171127
  Serious: Yes (Other)
  Sender: FDA-Public Use
  Company Number: DE-PFIZER INC-2017335915

PATIENT
  Age: 72 Year
  Sex: Female
  Weight: 56 kg

DRUGS (3)
  1. QUETIAPINE. [Suspect]
     Active Substance: QUETIAPINE
  2. TAVOR (LORAZEPAM) [Suspect]
     Active Substance: LORAZEPAM
     Dosage: 3.5 MG, DAILY
  3. LITHIUM. [Suspect]
     Active Substance: LITHIUM

REACTIONS (5)
  - Fall [Unknown]
  - Upper limb fracture [Unknown]
  - Confusional state [Unknown]
  - Dysphagia [Unknown]
  - Speech disorder [Unknown]
